FAERS Safety Report 14117016 (Version 1)
Quarter: 2017Q4

REPORT INFORMATION
  Report Type: Spontaneous
  Country: US (occurrence: US)
  Receive Date: 20171023
  Receipt Date: 20171023
  Transmission Date: 20180321
  Serious: No
  Sender: FDA-Public Use
  Company Number: US-PURDUE-USA-2017-0140543

PATIENT
  Sex: Male

DRUGS (1)
  1. OXYCONTIN [Suspect]
     Active Substance: OXYCODONE HYDROCHLORIDE
     Indication: ROAD TRAFFIC ACCIDENT
     Dosage: 40 MG, Q12H
     Route: 048

REACTIONS (6)
  - Formication [Unknown]
  - Dry throat [Unknown]
  - Malabsorption [Unknown]
  - Drug withdrawal syndrome [Unknown]
  - Diarrhoea [Unknown]
  - Drug effect decreased [Unknown]
